FAERS Safety Report 18144960 (Version 1)
Quarter: 2020Q3

REPORT INFORMATION
  Report Type: Spontaneous
  Country: AT (occurrence: AT)
  Receive Date: 20200813
  Receipt Date: 20200813
  Transmission Date: 20201103
  Serious: Yes (Hospitalization)
  Sender: FDA-Public Use
  Company Number: AT-MYLANLABS-2020M1069989

PATIENT
  Age: 75 Year
  Sex: Female

DRUGS (3)
  1. MOLAXOLE?PULVER ZUR HERSTELLUNG EINER L?SUNG ZUM EINNEHMEN [Suspect]
     Active Substance: POLYETHYLENE GLYCOL 3350\POTASSIUM CHLORIDE\SODIUM BICARBONATE\SODIUM CHLORIDE
     Indication: CONSTIPATION
     Dosage: UNK, 4?8 SACHETS DAILY
     Dates: start: 20200422, end: 20200423
  2. DILTIAZEM. [Suspect]
     Active Substance: DILTIAZEM
     Indication: ARRHYTHMIA
     Dosage: 180 MILLIGRAM, QD (1?0?1)
     Dates: start: 202002, end: 202005
  3. BLOPRESS [Concomitant]
     Active Substance: CANDESARTAN CILEXETIL
     Dosage: 16 MILLIGRAM, QD (0?0?1)

REACTIONS (4)
  - Coma [Recovered/Resolved]
  - Syncope [Recovered/Resolved]
  - Constipation [Recovered/Resolved]
  - Blood sodium decreased [Recovered/Resolved]

NARRATIVE: CASE EVENT DATE: 20200423
